FAERS Safety Report 11840307 (Version 1)
Quarter: 2015Q4

REPORT INFORMATION
  Report Type: Spontaneous
  Country: US (occurrence: None)
  Receive Date: 20151215
  Receipt Date: 20151215
  Transmission Date: 20160305
  Serious: Yes (Disabling)
  Sender: FDA-Public Use
  Company Number: None

PATIENT
  Age: 46 Year
  Sex: Male
  Weight: 102.06 kg

DRUGS (5)
  1. ONE A DAY MULTI-VIT [Concomitant]
  2. FANTYNAL [Concomitant]
  3. CYMBALTA [Suspect]
     Active Substance: DULOXETINE HYDROCHLORIDE
     Indication: BACK PAIN
     Route: 048
  4. LYRICA [Concomitant]
     Active Substance: PREGABALIN
  5. ZYRTEC [Concomitant]
     Active Substance: CETIRIZINE HYDROCHLORIDE

REACTIONS (13)
  - Drug withdrawal syndrome [None]
  - Feeling abnormal [None]
  - Anger [None]
  - Dizziness [None]
  - Fatigue [None]
  - Headache [None]
  - Eye disorder [None]
  - Decreased appetite [None]
  - Disturbance in attention [None]
  - Vision blurred [None]
  - Sleep disorder [None]
  - Memory impairment [None]
  - Paraesthesia [None]

NARRATIVE: CASE EVENT DATE: 20151214
